FAERS Safety Report 9347557 (Version 1)
Quarter: 2013Q2

REPORT INFORMATION
  Report Type: Spontaneous
  Country: US (occurrence: US)
  Receive Date: 20130614
  Receipt Date: 20130614
  Transmission Date: 20140414
  Serious: No
  Sender: FDA-Public Use
  Company Number: US-009507513-1306USA003386

PATIENT
  Age: 65 Year
  Sex: Female

DRUGS (1)
  1. AZASITE [Suspect]
     Indication: OCULAR HYPERAEMIA
     Dosage: UNK
     Route: 047
     Dates: start: 20130601

REACTIONS (5)
  - Ocular hyperaemia [Not Recovered/Not Resolved]
  - Drug dose omission [Unknown]
  - Product packaging quantity issue [Unknown]
  - Liquid product physical issue [Unknown]
  - Product label issue [Unknown]
